FAERS Safety Report 22242845 (Version 1)
Quarter: 2023Q2

REPORT INFORMATION
  Report Type: Spontaneous
  Country: US (occurrence: US)
  Receive Date: 20230424
  Receipt Date: 20230424
  Transmission Date: 20230722
  Serious: Yes (Other)
  Sender: FDA-Public Use
  Company Number: US-WOCKHARDT LIMITED-2023WLD000044

PATIENT
  Sex: Male
  Weight: 59 kg

DRUGS (1)
  1. CEFTRIAXONE [Suspect]
     Active Substance: CEFTRIAXONE
     Indication: Meningitis
     Dosage: 2 GRAM, BID
     Route: 042

REACTIONS (2)
  - Cholecystitis infective [Unknown]
  - Pseudocholelithiasis [Unknown]
